FAERS Safety Report 22531791 (Version 1)
Quarter: 2023Q2

REPORT INFORMATION
  Report Type: Spontaneous
  Country: US (occurrence: None)
  Receive Date: 20230606
  Receipt Date: 20230606
  Transmission Date: 20230722
  Serious: Yes (Other)
  Sender: FDA-Public Use
  Company Number: None

PATIENT
  Age: 87 Year
  Sex: Male

DRUGS (9)
  1. ADEMPAS [Suspect]
     Active Substance: RIOCIGUAT
     Indication: Pulmonary hypertension
     Dosage: FREQUENCY : 3 TIMES A DAY;?
     Route: 048
     Dates: start: 20190912
  2. LOVASTATIN [Concomitant]
  3. FUROSEMIDE [Concomitant]
     Active Substance: FUROSEMIDE
  4. COLCHICINE [Concomitant]
  5. PRADAXA [Concomitant]
     Active Substance: DABIGATRAN ETEXILATE MESYLATE
  6. POTASSIUM CHLORIDE [Concomitant]
     Active Substance: POTASSIUM CHLORIDE
  7. PANTOPRAZOLE [Concomitant]
  8. lidocaine top patch [Concomitant]
  9. diclofenac top gel [Concomitant]

REACTIONS (3)
  - Peripheral swelling [None]
  - Dyspnoea [None]
  - Cellulitis [None]

NARRATIVE: CASE EVENT DATE: 20230521
